FAERS Safety Report 9799825 (Version 3)
Quarter: 2015Q3

REPORT INFORMATION
  Report Type: Spontaneous
  Country: US (occurrence: US)
  Receive Date: 20140106
  Receipt Date: 20150806
  Transmission Date: 20151125
  Serious: No
  Sender: FDA-Public Use
  Company Number: US-GILEAD-2010-0032672

PATIENT
  Age: 66 Year
  Sex: Female
  Weight: 63.5 kg

DRUGS (26)
  1. ASPIRIN. [Concomitant]
     Active Substance: ASPIRIN
  2. PREDNISONE. [Concomitant]
     Active Substance: PREDNISONE
  3. NEXIUM [Concomitant]
     Active Substance: ESOMEPRAZOLE MAGNESIUM
  4. ENDOCET [Concomitant]
     Active Substance: ACETAMINOPHEN\OXYCODONE HYDROCHLORIDE
  5. SULFAMETHOXAZOLE/TRIMETHOPRIM [Concomitant]
  6. NAMENDA [Concomitant]
     Active Substance: MEMANTINE HYDROCHLORIDE
  7. PLAQUENIL [Concomitant]
     Active Substance: HYDROXYCHLOROQUINE SULFATE
  8. OXYCONTIN [Concomitant]
     Active Substance: OXYCODONE HYDROCHLORIDE
  9. ZOMIG [Concomitant]
     Active Substance: ZOLMITRIPTAN
  10. SYNTHROID [Concomitant]
     Active Substance: LEVOTHYROXINE SODIUM
  11. NYSTATIN. [Concomitant]
     Active Substance: NYSTATIN
  12. VOLTAREN [Concomitant]
     Active Substance: DICLOFENAC SODIUM
  13. LETAIRIS [Suspect]
     Active Substance: AMBRISENTAN
     Indication: PULMONARY ARTERIAL HYPERTENSION
     Route: 048
     Dates: start: 20100329
  14. CELEXA [Concomitant]
     Active Substance: CITALOPRAM HYDROBROMIDE
  15. LEUCOVORIN CALCIUM. [Concomitant]
     Active Substance: LEUCOVORIN CALCIUM
  16. LYRICA [Concomitant]
     Active Substance: PREGABALIN
  17. CLONAZEPAM. [Concomitant]
     Active Substance: CLONAZEPAM
  18. ARICEPT [Concomitant]
     Active Substance: DONEPEZIL HYDROCHLORIDE
  19. TRIAMCINOLONE [Concomitant]
     Active Substance: TRIAMCINOLONE
  20. ORPHENADRINE [Concomitant]
     Active Substance: ORPHENADRINE
  21. METHOTREXATE [Concomitant]
     Active Substance: METHOTREXATE
  22. FOLIC ACID. [Concomitant]
     Active Substance: FOLIC ACID
  23. AZATHIOPRINE. [Concomitant]
     Active Substance: AZATHIOPRINE
  24. POTASSIUM CHLORIDE. [Concomitant]
     Active Substance: POTASSIUM CHLORIDE
  25. LASIX [Concomitant]
     Active Substance: FUROSEMIDE
  26. FLUTICASONE [Concomitant]
     Active Substance: FLUTICASONE\FLUTICASONE PROPIONATE

REACTIONS (1)
  - Oedema peripheral [Recovered/Resolved]
